FAERS Safety Report 7557699-0 (Version None)
Quarter: 2011Q2

REPORT INFORMATION
  Report Type: 
  Country: None (occurrence: None)
  Receive Date: 20110620
  Receipt Date: 20110611
  Transmission Date: 20111010
  Serious: Yes (Hospitalization, Other)
  Sender: FDA-Public Use
  Company Number: CA-JNJFOC-20110312329

PATIENT
  Sex: Male
  Weight: 36.29 kg

DRUGS (3)
  1. CONCERTA [Suspect]
     Indication: ATTENTION DEFICIT/HYPERACTIVITY DISORDER
     Route: 048
     Dates: start: 20091221, end: 20100924
  2. TESTOSTERONE [Suspect]
     Indication: DELAYED PUBERTY
     Route: 030
  3. TESTOSTERONE [Suspect]
     Indication: GROWTH RETARDATION
     Route: 030

REACTIONS (2)
  - SUICIDE ATTEMPT [None]
  - DEPRESSION [None]
